FAERS Safety Report 15146811 (Version 1)
Quarter: 2018Q3

REPORT INFORMATION
  Report Type: Spontaneous
  Country: US (occurrence: US)
  Receive Date: 20180716
  Receipt Date: 20180716
  Transmission Date: 20181010
  Serious: Yes (Other)
  Sender: FDA-Public Use
  Company Number: US-STRIDES ARCOLAB LIMITED-2017SP011378

PATIENT

DRUGS (3)
  1. HYDROXYCHLOROQUINE [Suspect]
     Active Substance: HYDROXYCHLOROQUINE
     Indication: SYSTEMIC LUPUS ERYTHEMATOSUS
     Dosage: UNKNOWN
     Route: 065
  2. MYCOPHENOLATE MOFETIL. [Suspect]
     Active Substance: MYCOPHENOLATE MOFETIL
     Indication: SYSTEMIC LUPUS ERYTHEMATOSUS
     Dosage: UNKNOWN
     Route: 065
  3. PREDNISOLONE. [Suspect]
     Active Substance: PREDNISOLONE
     Indication: SYSTEMIC LUPUS ERYTHEMATOSUS
     Dosage: UNKNOWN
     Route: 065

REACTIONS (12)
  - Skin mass [Unknown]
  - Pruritus [Unknown]
  - Purpura [Unknown]
  - Skin hyperpigmentation [Unknown]
  - Mycobacterium chelonae infection [Unknown]
  - Panniculitis lobular [Unknown]
  - Skin exfoliation [Unknown]
  - Fat necrosis [Unknown]
  - Skin lesion [Unknown]
  - Off label use [Unknown]
  - Skin plaque [Unknown]
  - Papule [Unknown]
